FAERS Safety Report 7636280-9 (Version None)
Quarter: 2011Q3

REPORT INFORMATION
  Report Type: 
  Country: None (occurrence: None)
  Receive Date: 20110726
  Receipt Date: 20110708
  Transmission Date: 20111222
  Serious: Yes (Hospitalization)
  Sender: FDA-Public Use
  Company Number: US-GLAXOSMITHKLINE-A0731833A

PATIENT
  Age: 52 Year
  Sex: Male
  Weight: 109.5 kg

DRUGS (4)
  1. TRICOR [Concomitant]
  2. NEXIUM [Concomitant]
  3. AVANDIA [Suspect]
     Indication: DIABETES MELLITUS
     Dosage: 8MG PER DAY
     Route: 048
     Dates: start: 19970101, end: 20080217
  4. LIPITOR [Concomitant]

REACTIONS (3)
  - MYOCARDIAL INFARCTION [None]
  - HEART INJURY [None]
  - CARDIAC FAILURE CONGESTIVE [None]
